FAERS Safety Report 4730835-7 (Version None)
Quarter: 2005Q3

REPORT INFORMATION
  Report Type: 
  Country: None (occurrence: None)
  Receive Date: 20050719
  Receipt Date: 20040203
  Transmission Date: 20060218
  Serious: Yes (Hospitalization)
  Sender: FDA-Public Use
  Company Number: 187974

PATIENT
  Age: 39 Year
  Sex: Female
  Weight: 78.9259 kg

DRUGS (6)
  1. AVONEX [Suspect]
     Indication: MULTIPLE SCLEROSIS
     Dosage: SEE IMAGE
     Route: 030
     Dates: start: 20001101, end: 20000101
  2. AVONEX [Suspect]
     Indication: MULTIPLE SCLEROSIS
     Dosage: SEE IMAGE
     Route: 030
     Dates: start: 20001130, end: 20001101
  3. AVONEX [Suspect]
     Indication: MULTIPLE SCLEROSIS
     Dosage: SEE IMAGE
     Route: 030
     Dates: start: 20030101
  4. NEURONTIN [Concomitant]
  5. CLONAZEPAM [Concomitant]
  6. LEXAPRO [Concomitant]

REACTIONS (30)
  - AGITATION [None]
  - APHONIA [None]
  - ARTHRALGIA [None]
  - BACTERIAL INFECTION [None]
  - BLOOD PRESSURE INCREASED [None]
  - BONE PAIN [None]
  - COGNITIVE DISORDER [None]
  - COMMUNICATION DISORDER [None]
  - CRYING [None]
  - DEAFNESS [None]
  - DIZZINESS [None]
  - HORMONE LEVEL ABNORMAL [None]
  - HYPERTRICHOSIS [None]
  - INFLUENZA LIKE ILLNESS [None]
  - INJECTION SITE HAEMORRHAGE [None]
  - INJECTION SITE PAIN [None]
  - MOBILITY DECREASED [None]
  - MULTIPLE SCLEROSIS RELAPSE [None]
  - OEDEMA PERIPHERAL [None]
  - PAIN IN EXTREMITY [None]
  - PAIN OF SKIN [None]
  - PALPITATIONS [None]
  - RASH PUSTULAR [None]
  - SENSORY DISTURBANCE [None]
  - SUICIDAL IDEATION [None]
  - SUICIDE ATTEMPT [None]
  - ULCER [None]
  - UTERINE LEIOMYOMA [None]
  - VISUAL ACUITY REDUCED [None]
  - WEIGHT INCREASED [None]
